FAERS Safety Report 11563778 (Version 1)
Quarter: 2015Q3

REPORT INFORMATION
  Report Type: Spontaneous
  Country: US (occurrence: US)
  Receive Date: 20150916
  Receipt Date: 20150916
  Transmission Date: 20151125
  Serious: No
  Sender: FDA-Public Use
  Company Number: US-ELI_LILLY_AND_COMPANY-US200902003180

PATIENT
  Sex: Female

DRUGS (6)
  1. VITAMINS [Concomitant]
     Active Substance: VITAMINS
  2. ASPIRIN. [Concomitant]
     Active Substance: ASPIRIN
  3. ALLERGY MEDICATION [Concomitant]
     Active Substance: DIPHENHYDRAMINE HYDROCHLORIDE
  4. FORTEO [Suspect]
     Active Substance: TERIPARATIDE
     Dosage: UNK, UNK
     Dates: start: 200808
  5. FORTEO [Suspect]
     Active Substance: TERIPARATIDE
     Dates: start: 200808
  6. ANTIVIRALS NOS [Concomitant]
     Active Substance: UNSPECIFIED INGREDIENT
     Indication: VIITH NERVE PARALYSIS
     Dosage: UNK, UNK
     Dates: start: 2008, end: 2008

REACTIONS (7)
  - Mastoiditis [Unknown]
  - Ear pain [Unknown]
  - Eyelid disorder [Not Recovered/Not Resolved]
  - Dry eye [Recovered/Resolved]
  - VIIth nerve paralysis [Not Recovered/Not Resolved]
  - Eye pain [Unknown]
  - Sinusitis [Unknown]

NARRATIVE: CASE EVENT DATE: 2008
